FAERS Safety Report 8761175 (Version 2)
Quarter: 2012Q4

REPORT INFORMATION
  Report Type: 
  Country: GB (occurrence: GB)
  Receive Date: 20120830
  Receipt Date: 20120926
  Transmission Date: 20130627
  Serious: Yes (Hospitalization)
  Sender: FDA-Public Use
  Company Number: GB-MYLANLABS-2012S1017033

PATIENT
  Age: 6 Year
  Sex: Male
  Weight: 15 kg

DRUGS (1)
  1. AZATHIOPRINE [Suspect]
     Indication: IMMUNOSUPPRESSION
     Route: 048
     Dates: start: 20120609, end: 20120612

REACTIONS (1)
  - Jaundice cholestatic [Recovered/Resolved]
